FAERS Safety Report 5441999-4 (Version None)
Quarter: 2007Q3

REPORT INFORMATION
  Report Type: 
  Country: None (occurrence: None)
  Receive Date: 20070904
  Receipt Date: 20070827
  Transmission Date: 20080115
  Serious: Yes (Other)
  Sender: FDA-Public Use
  Company Number: B0485698A

PATIENT
  Age: 30 Year
  Sex: Male

DRUGS (1)
  1. PAROXETINE [Suspect]
     Indication: DRUG USE FOR UNKNOWN INDICATION
     Route: 048
     Dates: start: 20060502, end: 20070131

REACTIONS (8)
  - AKATHISIA [None]
  - COORDINATION ABNORMAL [None]
  - DYSKINESIA [None]
  - DYSTONIA [None]
  - FATIGUE [None]
  - HYPOAESTHESIA [None]
  - PARKINSONISM [None]
  - RESTLESSNESS [None]
